FAERS Safety Report 7438892-4 (Version None)
Quarter: 2011Q2

REPORT INFORMATION
  Report Type: 
  Country: None (occurrence: None)
  Receive Date: 20110426
  Receipt Date: 20110413
  Transmission Date: 20111010
  Serious: Yes (Other)
  Sender: FDA-Public Use
  Company Number: AR-GENENTECH-316236

PATIENT
  Age: 64 Year
  Sex: Male

DRUGS (1)
  1. MABTHERA [Suspect]
     Indication: OSTEOCHONDROSIS
     Dosage: 800 MG, Q21D
     Route: 042
     Dates: start: 20100928, end: 20110110

REACTIONS (6)
  - PYREXIA [None]
  - PRURITUS [None]
  - HYPOTENSION [None]
  - ABDOMINAL PAIN [None]
  - DYSPNOEA [None]
  - CHEST DISCOMFORT [None]
